FAERS Safety Report 12216332 (Version 1)
Quarter: 2016Q1

REPORT INFORMATION
  Report Type: Spontaneous
  Country: US (occurrence: US)
  Receive Date: 20160329
  Receipt Date: 20160329
  Transmission Date: 20160526
  Serious: No
  Sender: FDA-Public Use
  Company Number: US-AMGEN-USASP2016036067

PATIENT
  Age: 51 Year
  Sex: Female

DRUGS (1)
  1. ENBREL [Suspect]
     Active Substance: ETANERCEPT
     Indication: RHEUMATOID ARTHRITIS
     Dosage: UNK UNK, EVERY 10 TO 14 DAYS
     Route: 065

REACTIONS (5)
  - Skin reaction [Unknown]
  - Injection site reaction [Unknown]
  - Pruritus [Unknown]
  - Insomnia [Unknown]
  - Rash pustular [Unknown]
